FAERS Safety Report 23289624 (Version 1)
Quarter: 2023Q4

REPORT INFORMATION
  Report Type: Spontaneous
  Country: CN (occurrence: CN)
  Receive Date: 20231212
  Receipt Date: 20231212
  Transmission Date: 20240110
  Serious: Yes (Hospitalization)
  Sender: FDA-Public Use
  Company Number: CN-NOVOPROD-1150237

PATIENT
  Age: 25 Year
  Sex: Female

DRUGS (7)
  1. NOVORAPID [Suspect]
     Active Substance: INSULIN ASPART
     Dosage: 32 IU, QD (12 U-10 U-10 U, BEFORE THREE MEALS)
     Route: 058
  2. NOVORAPID [Suspect]
     Active Substance: INSULIN ASPART
     Dosage: 32 IU, QD (8 U-10 U-14 U BEFORE THREE MEALS)
     Route: 058
  3. NOVORAPID [Suspect]
     Active Substance: INSULIN ASPART
     Indication: Type 2 diabetes mellitus
     Dosage: 6 IU, TID (BEFORE THREE MEALS)
     Route: 058
  4. LEVEMIR [Suspect]
     Active Substance: INSULIN DETEMIR
     Indication: Type 2 diabetes mellitus
     Dosage: 28 IU, QD (BEFORE SLEEP)
     Route: 058
  5. TRESIBA [Suspect]
     Active Substance: INSULIN DEGLUDEC
     Indication: Type 2 diabetes mellitus
     Dosage: 32 IU, QD (BEFORE SLEEP)
     Route: 058
  6. TRESIBA [Suspect]
     Active Substance: INSULIN DEGLUDEC
     Dosage: 28 IU, QD (BEFORE SLEEP)
     Route: 058
  7. RYZODEG 70/30 [Suspect]
     Active Substance: INSULIN ASPART\INSULIN DEGLUDEC
     Indication: Type 2 diabetes mellitus
     Dosage: 38 IU, QD (18 U IN THE MORNING AND 20 U IN THE EVENING, BEFORE MEALS)
     Route: 058
     Dates: start: 20210914, end: 20211125

REACTIONS (2)
  - Type 1 diabetes mellitus [Unknown]
  - Diabetic ketoacidosis [Recovered/Resolved]
